FAERS Safety Report 24852499 (Version 3)
Quarter: 2025Q1

REPORT INFORMATION
  Report Type: Report from Study
  Country: US (occurrence: US)
  Receive Date: 20250116
  Receipt Date: 20250313
  Transmission Date: 20250409
  Serious: Yes (Hospitalization, Other)
  Sender: BAUSCH AND LOMB
  Company Number: US-BAUSCH-BL-2025-000481

PATIENT
  Age: 71 Year
  Sex: Female

DRUGS (1)
  1. XIFAXAN [Suspect]
     Active Substance: RIFAXIMIN
     Indication: Product used for unknown indication
     Route: 048
     Dates: start: 2020

REACTIONS (5)
  - Arthritis [Unknown]
  - Atrial fibrillation [Recovering/Resolving]
  - Hypotension [Unknown]
  - Pruritus [Unknown]
  - Therapy interrupted [Unknown]
